FAERS Safety Report 12475382 (Version 1)
Quarter: 2016Q2

REPORT INFORMATION
  Report Type: Spontaneous
  Country: US (occurrence: US)
  Receive Date: 20160617
  Receipt Date: 20160617
  Transmission Date: 20160815
  Serious: No
  Sender: FDA-Public Use
  Company Number: US-BAYER-2016-118936

PATIENT
  Age: 78 Year
  Sex: Male
  Weight: 78.91 kg

DRUGS (6)
  1. MIRALAX [Suspect]
     Active Substance: POLYETHYLENE GLYCOL 3350
     Indication: CONSTIPATION
     Dosage: 1 DF, QD
     Route: 048
     Dates: start: 2016
  2. VANCOMYCIN [Concomitant]
     Active Substance: VANCOMYCIN
  3. PETHOID [Concomitant]
  4. VEGAMOX [Concomitant]
     Active Substance: MOXIFLOXACIN HYDROCHLORIDE
  5. REFRESH [POLYVIDONE] [Concomitant]
  6. NEVANAC [Concomitant]
     Active Substance: NEPAFENAC

REACTIONS (1)
  - Product use issue [None]
